FAERS Safety Report 5840033-1 (Version None)
Quarter: 2008Q3

REPORT INFORMATION
  Report Type: 
  Country: None (occurrence: None)
  Receive Date: 20080811
  Receipt Date: 20071010
  Transmission Date: 20090109
  Serious: Yes (Life-Threatening, Other)
  Sender: FDA-Public Use
  Company Number: US-BAYER-200711401BWH

PATIENT
  Age: 25 Year
  Sex: Female

DRUGS (4)
  1. TRASYLOL [Suspect]
     Indication: HEART TRANSPLANT
     Dosage: UNIT DOSE: 10000 KIU
     Route: 042
     Dates: start: 20070412, end: 20070412
  2. TRASYLOL [Suspect]
     Dosage: UNIT DOSE: 2000000 KIU
     Route: 042
     Dates: start: 20070412, end: 20070412
  3. VANCOMYCIN HCL [Concomitant]
  4. GENERAL ANESTHETICS [Concomitant]

REACTIONS (2)
  - CARDIAC ARREST [None]
  - HYPERSENSITIVITY [None]
